FAERS Safety Report 9146271 (Version 1)
Quarter: 2013Q1

REPORT INFORMATION
  Report Type: Spontaneous
  Country: US (occurrence: US)
  Receive Date: 20130307
  Receipt Date: 20130307
  Transmission Date: 20140127
  Serious: Yes (Other)
  Sender: FDA-Public Use
  Company Number: US-THROMBOGENICS INC-JET-2013-012

PATIENT
  Sex: 0

DRUGS (1)
  1. JETREA [Suspect]
     Indication: PRODUCT USED FOR UNKNOWN INDICATION
     Dosage: 0.125 MG, ONE TIME DOSE
     Dates: start: 2013, end: 2013

REACTIONS (3)
  - Pupillary reflex impaired [Unknown]
  - Visual impairment [Unknown]
  - Visual acuity reduced [Unknown]
